FAERS Safety Report 7571433-X (Version None)
Quarter: 2011Q2

REPORT INFORMATION
  Report Type: 
  Country: None (occurrence: None)
  Receive Date: 20110624
  Receipt Date: 20110620
  Transmission Date: 20111010
  Serious: Yes (Death, Hospitalization)
  Sender: FDA-Public Use
  Company Number: PHHY2011GB53941

PATIENT
  Age: 84 Year
  Sex: Male

DRUGS (9)
  1. AMPICILLIN SODIUM/SULBACTAM SODIUM [Suspect]
     Dosage: 625 MG, TID
     Route: 048
     Dates: start: 20110519, end: 20110526
  2. COLCHICINE [Concomitant]
  3. LANSOPRAZOLE [Concomitant]
  4. ALLOPURINOL [Suspect]
     Indication: GOUT
     Dosage: 100 MG, QD
     Route: 048
     Dates: start: 20110519, end: 20110606
  5. LISINOPRIL [Concomitant]
  6. AMOXICILLIN [Suspect]
     Dosage: 500 MG, TID
     Route: 048
     Dates: start: 20110604, end: 20110606
  7. AMLODIPINE [Concomitant]
  8. FLUCONAZOLE [Concomitant]
  9. SIMVASTATIN [Concomitant]

REACTIONS (8)
  - ERYTHEMA [None]
  - RASH MACULO-PAPULAR [None]
  - SKIN OEDEMA [None]
  - HYPERSENSITIVITY [None]
  - PARAKERATOSIS [None]
  - DERMATITIS [None]
  - RENAL FAILURE ACUTE [None]
  - EXTRAVASATION BLOOD [None]
